FAERS Safety Report 9746393 (Version 4)
Quarter: 2014Q1

REPORT INFORMATION
  Report Type: Spontaneous
  Country: IT (occurrence: IT)
  Receive Date: 20131211
  Receipt Date: 20140314
  Transmission Date: 20141002
  Serious: Yes (Hospitalization)
  Sender: FDA-Public Use
  Company Number: IT-PFIZER INC-2013352065

PATIENT
  Age: 64 Year
  Sex: Female
  Weight: 52 kg

DRUGS (5)
  1. ZARZIO [Concomitant]
     Indication: COLONY STIMULATING FACTOR PROPHYLAXIS
     Dosage: 300 UG, UNK
     Route: 058
     Dates: start: 20130823, end: 20130907
  2. ADRIBLASTINA [Suspect]
     Indication: BREAST NEOPLASM
     Dosage: 80.53 MG, CYCLIC
     Route: 042
     Dates: start: 20130627, end: 20130814
  3. ENDOXAN-BAXTER [Suspect]
     Indication: BREAST NEOPLASM
     Dosage: 805.4 MG, CYCLIC
     Route: 042
     Dates: start: 20130627, end: 20130814
  4. ZOFRAN [Concomitant]
     Indication: PROPHYLAXIS OF NAUSEA AND VOMITING
     Dosage: 8 MG, UNK
     Route: 042
     Dates: start: 20130627, end: 20130814
  5. DEXAMETHASONE PHOSPHATE ^HOSPIRA^ [Concomitant]
     Indication: PROPHYLAXIS OF NAUSEA AND VOMITING
     Dosage: 20 MG, UNK
     Route: 042
     Dates: start: 20130627, end: 20130925

REACTIONS (3)
  - Bone marrow toxicity [Recovered/Resolved]
  - Weight decreased [Recovered/Resolved]
  - Diarrhoea [Recovered/Resolved]
